FAERS Safety Report 15423956 (Version 1)
Quarter: 2018Q3

REPORT INFORMATION
  Report Type: Spontaneous
  Country: GB (occurrence: GB)
  Receive Date: 20180925
  Receipt Date: 20180925
  Transmission Date: 20181010
  Serious: Yes (Hospitalization)
  Sender: FDA-Public Use
  Company Number: GB-MICRO LABS LIMITED-BB2018-02108

PATIENT
  Age: 79 Year
  Sex: Male
  Weight: 65 kg

DRUGS (16)
  1. FOLIC ACID. [Concomitant]
     Active Substance: FOLIC ACID
     Dates: start: 201711
  2. ATORVASTATIN [Concomitant]
     Active Substance: ATORVASTATIN
     Dates: start: 201506
  3. CASSIA [Concomitant]
     Dates: start: 200906
  4. UREA. [Concomitant]
     Active Substance: UREA
     Dates: start: 20180620
  5. RAMIPRIL. [Concomitant]
     Active Substance: RAMIPRIL
     Dates: start: 20180530, end: 20180705
  6. SALBUTAMOL [Concomitant]
     Active Substance: ALBUTEROL
     Dates: start: 201708
  7. PROPECIA [Concomitant]
     Active Substance: FINASTERIDE
     Dates: start: 2003
  8. BISOPROLOL [Concomitant]
     Active Substance: BISOPROLOL
     Dates: start: 201402
  9. APIXABAN [Concomitant]
     Active Substance: APIXABAN
     Dates: start: 201505
  10. FEXOFENADINE [Concomitant]
     Active Substance: FEXOFENADINE\FEXOFENADINE HYDROCHLORIDE
     Dates: start: 20180620
  11. SPIRIVA [Concomitant]
     Active Substance: TIOTROPIUM BROMIDE MONOHYDRATE
     Dates: start: 201712
  12. SALMETEROL/FLUTICASONE [Concomitant]
     Active Substance: FLUTICASONE PROPIONATE\SALMETEROL XINAFOATE
     Dates: start: 201207
  13. LOSARTAN. [Suspect]
     Active Substance: LOSARTAN
     Indication: HYPERTENSION
     Dates: start: 20180612, end: 20180731
  14. DERMOL [Concomitant]
     Active Substance: BENZALKONIUM CHLORIDE\CHLORHEXIDINE HYDROCHLORIDE\ISOPROPYL MYRISTATE\PARAFFIN
  15. FUROSEMIDE. [Concomitant]
     Active Substance: FUROSEMIDE
     Dates: start: 201402
  16. CLOBETASONE [Concomitant]
     Active Substance: CLOBETASONE
     Indication: RASH
     Dates: start: 20180712

REACTIONS (3)
  - Hypotension [Recovered/Resolved]
  - Vasculitic rash [Recovering/Resolving]
  - Acute kidney injury [Recovered/Resolved]

NARRATIVE: CASE EVENT DATE: 20180727
